FAERS Safety Report 15450887 (Version 8)
Quarter: 2021Q2

REPORT INFORMATION
  Report Type: Spontaneous
  Country: US (occurrence: US)
  Receive Date: 20181001
  Receipt Date: 20210628
  Transmission Date: 20210716
  Serious: No
  Sender: FDA-Public Use
  Company Number: US-PFIZER INC-2018391025

PATIENT
  Age: 69 Year
  Sex: Female
  Weight: 95.25 kg

DRUGS (2)
  1. EFFEXOR XR [Suspect]
     Active Substance: VENLAFAXINE HYDROCHLORIDE
     Indication: DEPRESSION
  2. EFFEXOR XR [Suspect]
     Active Substance: VENLAFAXINE HYDROCHLORIDE
     Indication: ANXIETY
     Dosage: 150 MG, 1X/DAY
     Route: 048
     Dates: start: 199901

REACTIONS (5)
  - Anxiety [Unknown]
  - Anosmia [Not Recovered/Not Resolved]
  - Suspected COVID-19 [Unknown]
  - Illness [Recovered/Resolved with Sequelae]
  - Body height decreased [Unknown]

NARRATIVE: CASE EVENT DATE: 202012
